FAERS Safety Report 21665182 (Version 2)
Quarter: 2022Q4

REPORT INFORMATION
  Report Type: Spontaneous
  Country: CA (occurrence: CA)
  Receive Date: 20221130
  Receipt Date: 20221201
  Transmission Date: 20230113
  Serious: Yes (Death)
  Sender: FDA-Public Use
  Company Number: CA-TEVA-2022-CA-2828198

PATIENT
  Age: 56 Year
  Sex: Female
  Weight: 42 kg

DRUGS (2)
  1. OLANZAPINE [Suspect]
     Active Substance: OLANZAPINE
     Indication: Schizophrenia
     Dosage: 30 MILLIGRAM DAILY;
     Route: 048
  2. CLOZAPINE [Suspect]
     Active Substance: CLOZAPINE
     Indication: Schizophrenia
     Dosage: 50 MILLIEQUIVALENTS DAILY;
     Route: 048

REACTIONS (1)
  - Death [Fatal]
